FAERS Safety Report 6406320-3 (Version None)
Quarter: 2009Q4

REPORT INFORMATION
  Report Type: 
  Country: None (occurrence: None)
  Receive Date: 20091019
  Receipt Date: 20091009
  Transmission Date: 20100525
  Serious: Yes (Death)
  Sender: FDA-Public Use
  Company Number: BE-ABBOTT-09P-013-0557625-00

PATIENT
  Weight: 68 kg

DRUGS (1)
  1. LUCRIN TRI-DEPOT [Suspect]
     Indication: PROSTATE CANCER
     Dates: start: 20060914, end: 20060914

REACTIONS (1)
  - SMALL CELL CARCINOMA [None]
